FAERS Safety Report 15813811 (Version 1)
Quarter: 2019Q1

REPORT INFORMATION
  Report Type: Spontaneous
  Country: GB (occurrence: GB)
  Receive Date: 20190111
  Receipt Date: 20190111
  Transmission Date: 20190417
  Serious: Yes (Other)
  Sender: FDA-Public Use
  Company Number: GB-MYLANLABS-2019M1002043

PATIENT
  Age: 32 Year
  Sex: Female
  Weight: 70.76 kg

DRUGS (1)
  1. FLUOXETINE [Suspect]
     Active Substance: FLUOXETINE HYDROCHLORIDE
     Indication: DEPRESSION
     Dosage: 20 MILLIGRAM
     Route: 048
     Dates: start: 20160801, end: 20180621

REACTIONS (4)
  - Sexual dysfunction [Unknown]
  - Libido decreased [Not Recovered/Not Resolved]
  - Anorgasmia [Unknown]
  - Orgasmic sensation decreased [Unknown]

NARRATIVE: CASE EVENT DATE: 20161201
